FAERS Safety Report 10600018 (Version 3)
Quarter: 2014Q4

REPORT INFORMATION
  Report Type: Spontaneous
  Country: NZ (occurrence: NZ)
  Receive Date: 20141121
  Receipt Date: 20141202
  Transmission Date: 20150529
  Serious: Yes (Other)
  Sender: FDA-Public Use
  Company Number: NZ-ABBVIE-14K-118-1262998-00

PATIENT
  Age: 58 Year
  Sex: Male

DRUGS (1)
  1. HUMIRA [Suspect]
     Active Substance: ADALIMUMAB
     Indication: ANKYLOSING SPONDYLITIS
     Route: 065

REACTIONS (13)
  - Abasia [Unknown]
  - Insomnia [Unknown]
  - Fear [Unknown]
  - Immunodeficiency [Unknown]
  - Wound [Unknown]
  - Pruritus [Unknown]
  - Localised infection [Unknown]
  - Pain in extremity [Unknown]
  - Weight decreased [Unknown]
  - Ankylosing spondylitis [Recovering/Resolving]
  - Fatigue [Unknown]
  - Infection [Unknown]
  - Quality of life decreased [Unknown]

NARRATIVE: CASE EVENT DATE: 201410
